FAERS Safety Report 23014974 (Version 3)
Quarter: 2025Q4

REPORT INFORMATION
  Report Type: Report from Study
  Country: AU (occurrence: AU)
  Receive Date: 20231002
  Receipt Date: 20251024
  Transmission Date: 20260119
  Serious: Yes (Life-Threatening, Hospitalization)
  Sender: NOVARTIS
  Company Number: AU-002147023-NVSC2021AU278730

PATIENT
  Age: 5 Year
  Sex: Female
  Weight: 10.62 kg

DRUGS (4)
  1. MEKINIST [Suspect]
     Active Substance: TRAMETINIB DIMETHYL SULFOXIDE
     Indication: Neurofibromatosis
     Dosage: 0.375 MG, QD
     Route: 048
     Dates: start: 201803
  2. MEKINIST [Suspect]
     Active Substance: TRAMETINIB DIMETHYL SULFOXIDE
     Indication: Neurofibroma
     Dosage: 0.375 MG, QD
     Route: 048
     Dates: start: 20211015, end: 20220622
  3. MEKINIST [Suspect]
     Active Substance: TRAMETINIB DIMETHYL SULFOXIDE
     Dosage: 0.375 MG, QD
     Route: 048
     Dates: end: 20230320
  4. MELATONIN [Concomitant]
     Active Substance: MELATONIN
     Indication: Obstructive sleep apnoea syndrome
     Dosage: 2 MG
     Route: 065
     Dates: end: 20231103

REACTIONS (16)
  - Pneumonia [Recovering/Resolving]
  - Malaise [Unknown]
  - Cough [Recovered/Resolved]
  - Pyrexia [Recovered/Resolved]
  - Diarrhoea [Unknown]
  - Dyspnoea [Not Recovered/Not Resolved]
  - Ingrowing nail [Recovering/Resolving]
  - Nail discolouration [Unknown]
  - Nail bed bleeding [Unknown]
  - Anaemia [Unknown]
  - Stoma site erythema [Recovered/Resolved]
  - Weight decreased [Unknown]
  - Stoma site infection [Recovered/Resolved]
  - Stoma site odour [Recovered/Resolved]
  - Staphylococcal infection [Recovered/Resolved]
  - Stoma site hypergranulation [Recovered/Resolved]

NARRATIVE: CASE EVENT DATE: 20220721
